FAERS Safety Report 10467953 (Version 4)
Quarter: 2015Q2

REPORT INFORMATION
  Report Type: Report from Study
  Country: BE (occurrence: BE)
  Receive Date: 20140922
  Receipt Date: 20150413
  Transmission Date: 20150821
  Serious: Yes (Hospitalization, Other)
  Sender: FDA-Public Use
  Company Number: BE-B.I. PHARMACEUTICALS,INC./RIDGEFIELD-2013-BI-40746BI

PATIENT
  Age: 81 Year
  Sex: Male
  Weight: 94.4 kg

DRUGS (2)
  1. TERAZOSABB [Concomitant]
     Active Substance: TERAZOSIN HYDROCHLORIDE
     Indication: BENIGN PROSTATIC HYPERPLASIA
     Dosage: 10 MG
     Route: 048
     Dates: start: 20100318
  2. BI 10773 [Suspect]
     Active Substance: EMPAGLIFLOZIN
     Indication: TYPE 2 DIABETES MELLITUS
     Dosage: 25 MG
     Route: 048
     Dates: start: 20121126

REACTIONS (6)
  - Acute kidney injury [Recovered/Resolved]
  - Benign prostatic hyperplasia [Recovered/Resolved]
  - Prostate cancer [Not Recovered/Not Resolved]
  - Benign prostatic hyperplasia [Recovered/Resolved]
  - Anaemia [Recovered/Resolved]
  - Urinary tract infection [Recovered/Resolved]

NARRATIVE: CASE EVENT DATE: 20131129
